FAERS Safety Report 11520129 (Version 1)
Quarter: 2015Q3

REPORT INFORMATION
  Report Type: Other
  Country: GB (occurrence: GB)
  Receive Date: 20150918
  Receipt Date: 20150918
  Transmission Date: 20151125
  Serious: Yes (Other)
  Sender: FDA-Public Use
  Company Number: GB-GLENMARK PHARMACEUTICALS INC, USA.-2015GMK019457

PATIENT

DRUGS (1)
  1. TOPIRAMATE. [Suspect]
     Active Substance: TOPIRAMATE
     Indication: STATUS MIGRAINOSUS
     Dosage: 25 MG, OD
     Dates: start: 20150814, end: 20150822

REACTIONS (4)
  - Muscle spasms [Recovering/Resolving]
  - Off label use [Unknown]
  - Impaired work ability [None]
  - Fatigue [Recovering/Resolving]
